FAERS Safety Report 24446791 (Version 4)
Quarter: 2024Q4

REPORT INFORMATION
  Report Type: Spontaneous
  Country: CL (occurrence: CL)
  Receive Date: 20241016
  Receipt Date: 20241209
  Transmission Date: 20250114
  Serious: No
  Sender: PFIZER
  Company Number: CL-PFIZER INC-202400276258

PATIENT

DRUGS (1)
  1. GENOTROPIN [Suspect]
     Active Substance: SOMATROPIN

REACTIONS (1)
  - Device mechanical issue [Unknown]

NARRATIVE: CASE EVENT DATE: 20241008
